FAERS Safety Report 19893683 (Version 3)
Quarter: 2021Q4

REPORT INFORMATION
  Report Type: Spontaneous
  Country: FI (occurrence: FI)
  Receive Date: 20210929
  Receipt Date: 20211220
  Transmission Date: 20220304
  Serious: Yes (Other)
  Sender: FDA-Public Use
  Company Number: FI-002147023-NVSC2021FI218154

PATIENT
  Age: 48 Year
  Sex: Female

DRUGS (3)
  1. AIMOVIG [Suspect]
     Active Substance: ERENUMAB-AOOE
     Indication: Migraine
     Dosage: UNK UNK, Q4WK  (EVERY 4 WEEKS)
     Route: 065
     Dates: start: 201911, end: 202005
  2. GALCANEZUMAB [Suspect]
     Active Substance: GALCANEZUMAB
     Indication: Migraine
     Dosage: UNK
     Route: 065
     Dates: start: 202012
  3. ESTRADIOL [Concomitant]
     Active Substance: ESTRADIOL
     Indication: Migraine
     Dosage: UNK
     Route: 065
     Dates: start: 201804

REACTIONS (1)
  - Breast cancer [Recovering/Resolving]

NARRATIVE: CASE EVENT DATE: 20210802
